FAERS Safety Report 12437788 (Version 1)
Quarter: 2016Q2

REPORT INFORMATION
  Report Type: Spontaneous
  Country: US (occurrence: US)
  Receive Date: 20160606
  Receipt Date: 20160606
  Transmission Date: 20160815
  Serious: No
  Sender: FDA-Public Use
  Company Number: US-BAUSCH-BL-2015-030074

PATIENT
  Age: 64 Year
  Sex: Female
  Weight: 77.18 kg

DRUGS (1)
  1. ELIDEL [Suspect]
     Active Substance: PIMECROLIMUS
     Indication: EYE DISORDER
     Route: 061
     Dates: start: 20151115, end: 201511

REACTIONS (3)
  - Eye pain [Recovered/Resolved]
  - Treatment noncompliance [Unknown]
  - Eye irritation [Recovered/Resolved]

NARRATIVE: CASE EVENT DATE: 20151115
